FAERS Safety Report 16877967 (Version 4)
Quarter: 2020Q4

REPORT INFORMATION
  Report Type: Report from Study
  Country: CA (occurrence: CA)
  Receive Date: 20191002
  Receipt Date: 20201221
  Transmission Date: 20210113
  Serious: Yes (Other)
  Sender: FDA-Public Use
  Company Number: CA-JNJFOC-20190928407

PATIENT
  Age: 45 Year
  Sex: Female

DRUGS (1)
  1. STELARA [Suspect]
     Active Substance: USTEKINUMAB
     Indication: PSORIASIS
     Route: 058
     Dates: start: 20160715

REACTIONS (4)
  - Headache [Recovered/Resolved]
  - Pneumonia [Recovered/Resolved]
  - Ear infection [Recovered/Resolved]
  - Mass [Recovered/Resolved]

NARRATIVE: CASE EVENT DATE: 201909
